FAERS Safety Report 23952223 (Version 2)
Quarter: 2024Q2

REPORT INFORMATION
  Report Type: Spontaneous
  Country: RO (occurrence: RO)
  Receive Date: 20240607
  Receipt Date: 20240620
  Transmission Date: 20240716
  Serious: Yes (Other)
  Sender: FDA-Public Use
  Company Number: RO-SANDOZ-SDZ2024RO053435

PATIENT
  Age: 40 Year
  Sex: Female

DRUGS (5)
  1. XELJANZ [Suspect]
     Active Substance: TOFACITINIB CITRATE
     Dosage: 5 MG, 2X/DAY
     Dates: start: 201912
  2. LEFLUNOMIDE [Suspect]
     Active Substance: LEFLUNOMIDE
     Dosage: 20 MG, 1X/DAY
     Dates: start: 2017, end: 2019
  3. PLAQUENIL [Suspect]
     Active Substance: HYDROXYCHLOROQUINE SULFATE
     Dosage: 400 MG, 1X/DAY
     Dates: start: 2012
  4. METHOTREXATE [Suspect]
     Active Substance: METHOTREXATE
     Dosage: 20 MG, WEEKLY
     Dates: start: 2012, end: 2017
  5. METHOTREXATE [Suspect]
     Active Substance: METHOTREXATE
     Dosage: 15-10 MG, WEEKLY
     Dates: start: 2019

REACTIONS (9)
  - Disturbance in attention [Unknown]
  - Weight decreased [Unknown]
  - Butterfly rash [Unknown]
  - Nausea [Unknown]
  - Morning sickness [Unknown]
  - Dizziness [Unknown]
  - Asthenia [Unknown]
  - Photosensitivity reaction [Unknown]
  - Arthralgia [Unknown]
